FAERS Safety Report 9528696 (Version 1)
Quarter: 2013Q3

REPORT INFORMATION
  Report Type: Spontaneous
  Country: US (occurrence: US)
  Receive Date: 20130917
  Receipt Date: 20130917
  Transmission Date: 20140515
  Serious: No
  Sender: FDA-Public Use
  Company Number: US-BAUSCH-BL-2013-002292

PATIENT
  Age: 32 Year
  Sex: Female

DRUGS (2)
  1. ERYTHROMYCIN OPHTHALMIC OINTMENT USP 0.5% [Suspect]
     Indication: CONJUNCTIVITIS
     Dosage: 1 RIBBON; TWICE A DAY; LEFT EYE
     Route: 047
     Dates: start: 20130418, end: 20130418
  2. ERYTHROMYCIN OPHTHALMIC OINTMENT USP 0.5% [Suspect]
     Dosage: 1 RIBBON; DAILY; RIGHT EYE
     Route: 047
     Dates: start: 20130418, end: 20130418

REACTIONS (2)
  - Burning sensation [Recovered/Resolved]
  - Abnormal sensation in eye [Recovered/Resolved]
